FAERS Safety Report 5947640-6 (Version None)
Quarter: 2008Q4

REPORT INFORMATION
  Report Type: 
  Country: None (occurrence: None)
  Receive Date: 20081107
  Receipt Date: 20081030
  Transmission Date: 20090506
  Serious: Yes (Hospitalization, Other)
  Sender: FDA-Public Use
  Company Number: JPI-P-005218

PATIENT
  Age: 49 Year
  Sex: Male

DRUGS (6)
  1. XYREM [Suspect]
     Indication: CATAPLEXY
     Dosage: 4.5 GM (2.25 GM,2 IN 1 D), ORAL;  12 GM (6 GM, 2 IN 1 D), ORAL
     Route: 048
     Dates: start: 20060628, end: 20080517
  2. XYREM [Suspect]
     Indication: NARCOLEPSY
     Dosage: 4.5 GM (2.25 GM,2 IN 1 D), ORAL;  12 GM (6 GM, 2 IN 1 D), ORAL
     Route: 048
     Dates: start: 20060628, end: 20080517
  3. XYREM [Suspect]
     Indication: CATAPLEXY
     Dosage: 4.5 GM (2.25 GM,2 IN 1 D), ORAL;  12 GM (6 GM, 2 IN 1 D), ORAL
     Route: 048
     Dates: start: 20080518
  4. XYREM [Suspect]
     Indication: NARCOLEPSY
     Dosage: 4.5 GM (2.25 GM,2 IN 1 D), ORAL;  12 GM (6 GM, 2 IN 1 D), ORAL
     Route: 048
     Dates: start: 20080518
  5. FLUTICASONE PROPIONATE AND SALMETEROL(FLUTICASONE PROPIONATE W/SALMETE [Concomitant]
  6. ALBUTEROL [Concomitant]

REACTIONS (7)
  - CATAPLEXY [None]
  - CONDITION AGGRAVATED [None]
  - CONFUSIONAL STATE [None]
  - CONVULSION [None]
  - FOOT FRACTURE [None]
  - HEAD INJURY [None]
  - PULMONARY EMBOLISM [None]
